FAERS Safety Report 6769121-2 (Version None)
Quarter: 2010Q2

REPORT INFORMATION
  Report Type: 
  Country: None (occurrence: None)
  Receive Date: 20100603
  Receipt Date: 20100531
  Transmission Date: 20101027
  Serious: Yes (Other)
  Sender: FDA-Public Use
  Company Number: 2009SP031536

PATIENT
  Sex: Female

DRUGS (2)
  1. NASONEX [Suspect]
     Indication: NASAL POLYPS
     Dosage: QD;NAS
     Route: 045
     Dates: start: 20000701, end: 20090920
  2. NASONEX [Suspect]
     Indication: PROPHYLAXIS
     Dosage: QD;NAS
     Route: 045
     Dates: start: 20000701, end: 20090920

REACTIONS (1)
  - BLOOD CORTICOTROPHIN DECREASED [None]
